FAERS Safety Report 8456482-1 (Version None)
Quarter: 2012Q2

REPORT INFORMATION
  Report Type: 
  Country: None (occurrence: None)
  Receive Date: 20120621
  Receipt Date: 20120612
  Transmission Date: 20120825
  Serious: Yes (Death, Hospitalization)
  Sender: FDA-Public Use
  Company Number: PHHY2012CA019211

PATIENT
  Sex: Male

DRUGS (2)
  1. SANDOSTATIN LAR [Suspect]
     Indication: NEUROENDOCRINE TUMOUR
     Dosage: 20 MG, EVERY 4 WEEKS
     Route: 030
  2. AFINITOR [Suspect]
     Indication: NEUROENDOCRINE TUMOUR
     Dosage: 05 MG EVERY DAY
     Route: 048
     Dates: start: 20120126

REACTIONS (8)
  - DIABETES MELLITUS [None]
  - VOMITING [None]
  - MALAISE [None]
  - DEATH [None]
  - FATIGUE [None]
  - HYPOPHAGIA [None]
  - MOVEMENT DISORDER [None]
  - ABDOMINAL PAIN UPPER [None]
